FAERS Safety Report 6512024-9 (Version None)
Quarter: 2009Q4

REPORT INFORMATION
  Report Type: 
  Country: None (occurrence: None)
  Receive Date: 20091222
  Receipt Date: 20090716
  Transmission Date: 20100525
  Serious: No
  Sender: FDA-Public Use
  Company Number: US-ASTRAZENECA-2009UW12734

PATIENT
  Age: 68 Year
  Sex: Female
  Weight: 60.3 kg

DRUGS (4)
  1. CRESTOR [Suspect]
     Indication: BLOOD CHOLESTEROL INCREASED
     Route: 048
     Dates: start: 20090510, end: 20090518
  2. COENZYME Q10 [Concomitant]
  3. THYROID TAB [Concomitant]
  4. ATENOLOL [Concomitant]

REACTIONS (7)
  - ASTHENIA [None]
  - HEADACHE [None]
  - MUSCLE SPASMS [None]
  - MYALGIA [None]
  - NAUSEA [None]
  - NUCHAL RIGIDITY [None]
  - PYREXIA [None]
